FAERS Safety Report 13067774 (Version 5)
Quarter: 2019Q1

REPORT INFORMATION
  Report Type: Spontaneous
  Country: DE (occurrence: DE)
  Receive Date: 20161228
  Receipt Date: 20190305
  Transmission Date: 20190417
  Serious: Yes (Death, Hospitalization, Other)
  Sender: FDA-Public Use
  Company Number: DE-ACCORD-046800

PATIENT
  Age: 56 Year
  Sex: Male

DRUGS (5)
  1. ETOPOSIDE. [Suspect]
     Active Substance: ETOPOSIDE
     Indication: SEMINOMA
     Dates: start: 20120416, end: 20120428
  2. BLEOMYCIN [Suspect]
     Active Substance: BLEOMYCIN SULFATE
     Indication: SEMINOMA
  3. ACETYLSALICYLIC ACID [Suspect]
     Active Substance: ASPIRIN
     Indication: ANTIPLATELET THERAPY
     Route: 065
  4. CLOPIDOGREL [Suspect]
     Active Substance: CLOPIDOGREL BISULFATE
     Indication: ANTIPLATELET THERAPY
     Route: 065
  5. CISPLATIN. [Suspect]
     Active Substance: CISPLATIN
     Indication: TESTICULAR GERM CELL CANCER METASTATIC
     Dosage: 2 DOSES WITH 20 MG/M2, 1 DOSE WITH 10 MG/M2
     Route: 042
     Dates: start: 20120416, end: 20120428

REACTIONS (10)
  - Brain oedema [Fatal]
  - Thrombocytopenia [Unknown]
  - Ischaemic cerebral infarction [Fatal]
  - Cerebral infarction [Unknown]
  - Subdural haemorrhage [Not Recovered/Not Resolved]
  - Facial paralysis [Unknown]
  - Arterial occlusive disease [Fatal]
  - Cerebral artery occlusion [Fatal]
  - Cerebral artery stenosis [Unknown]
  - Vasospasm [None]

NARRATIVE: CASE EVENT DATE: 20120511
